FAERS Safety Report 24388840 (Version 2)
Quarter: 2024Q4

REPORT INFORMATION
  Report Type: Spontaneous
  Country: CH (occurrence: CH)
  Receive Date: 20241002
  Receipt Date: 20241019
  Transmission Date: 20250115
  Serious: Yes (Other)
  Sender: TEVA
  Company Number: CH-TEVA-VS-3247796

PATIENT
  Age: 63 Year
  Sex: Male

DRUGS (6)
  1. MYCOPHENOLATE MOFETIL [Suspect]
     Active Substance: MYCOPHENOLATE MOFETIL
     Indication: Prophylaxis against graft versus host disease
     Route: 065
  2. LETERMOVIR [Suspect]
     Active Substance: LETERMOVIR
     Indication: Antiviral prophylaxis
     Route: 065
  3. CYCLOSPORINE [Suspect]
     Active Substance: CYCLOSPORINE
     Indication: Prophylaxis against graft versus host disease
     Dosage: INITIAL AND TAPERED DOSE WAS UNKNOWN
     Route: 065
  4. PREDNISONE [Suspect]
     Active Substance: PREDNISONE
     Indication: Capillary leak syndrome
     Route: 065
  5. PREDNISONE [Suspect]
     Active Substance: PREDNISONE
     Indication: Capillary leak syndrome
     Dosage: INITIAL AND TAPERED DOSE UNKNOWN
     Route: 065
  6. TACROLIMUS [Suspect]
     Active Substance: TACROLIMUS
     Indication: Graft versus host disease in skin
     Route: 065

REACTIONS (5)
  - Gastrointestinal toxicity [Unknown]
  - Drug ineffective [Unknown]
  - Cytomegalovirus colitis [Recovering/Resolving]
  - Pneumonia viral [Recovering/Resolving]
  - Cytomegalovirus infection [Recovering/Resolving]
